FAERS Safety Report 21543086 (Version 1)
Quarter: 2022Q4

REPORT INFORMATION
  Report Type: Spontaneous
  Country: CN (occurrence: CN)
  Receive Date: 20221102
  Receipt Date: 20221102
  Transmission Date: 20230112
  Serious: Yes (Other)
  Sender: FDA-Public Use
  Company Number: CN-MYLANLABS-2022M1119288

PATIENT
  Age: 68 Year
  Sex: Female
  Weight: 45 kg

DRUGS (2)
  1. LIPITOR [Suspect]
     Active Substance: ATORVASTATIN CALCIUM
     Indication: Cerebral infarction
     Dosage: 20 MILLIGRAM, QD (ONCE PER NIGHT)
     Route: 048
     Dates: start: 20220918, end: 20220923
  2. DONEPEZIL HYDROCHLORIDE [Suspect]
     Active Substance: DONEPEZIL HYDROCHLORIDE
     Indication: Cerebral infarction
     Dosage: 5 MILLIGRAM, QD (ONCE PER NIGHT)
     Route: 048
     Dates: start: 20220922, end: 20220923

REACTIONS (4)
  - Pyrexia [Recovering/Resolving]
  - Oropharyngeal pain [Recovering/Resolving]
  - Diarrhoea [Recovering/Resolving]
  - Aspartate aminotransferase increased [Recovering/Resolving]

NARRATIVE: CASE EVENT DATE: 20220923
